FAERS Safety Report 8785768 (Version 1)
Quarter: 2012Q4

REPORT INFORMATION
  Report Type: 
  Country: US (occurrence: US)
  Receive Date: 20120914
  Receipt Date: 20120914
  Transmission Date: 20130627
  Serious: Yes (Other)
  Sender: FDA-Public Use
  Company Number: US-GLAXOSMITHKLINE-A0993142A

PATIENT
  Age: 46 Year
  Sex: Female

DRUGS (18)
  1. ADVAIR [Suspect]
     Indication: CHRONIC OBSTRUCTIVE PULMONARY DISEASE
     Route: 055
     Dates: start: 2007, end: 2007
  2. SYMBICORT [Suspect]
     Indication: CHRONIC OBSTRUCTIVE PULMONARY DISEASE
     Route: 055
  3. LORCET [Concomitant]
  4. PERCOCET [Concomitant]
  5. KLOR CON [Concomitant]
  6. IPRATROPIUM BROMIDE [Concomitant]
  7. PERFOROMIST [Concomitant]
  8. TAMBOCOR [Concomitant]
  9. TEGRETOL XR [Concomitant]
  10. DIOVAN [Concomitant]
  11. AYGESTIN [Concomitant]
  12. NEXIUM [Concomitant]
  13. NORVASC [Concomitant]
  14. BENZONATATE [Concomitant]
  15. VITAMIN D [Concomitant]
  16. SOMA [Concomitant]
  17. FLEXERIL [Concomitant]
  18. LIORESAL [Concomitant]

REACTIONS (6)
  - Aphasia [Recovered/Resolved]
  - Drug ineffective [Unknown]
  - Dysphonia [Unknown]
  - Oral pain [Unknown]
  - Oral candidiasis [Unknown]
  - Condition aggravated [Unknown]
